FAERS Safety Report 7339344-2 (Version None)
Quarter: 2011Q1

REPORT INFORMATION
  Report Type: 
  Country: None (occurrence: None)
  Receive Date: 20110308
  Receipt Date: 20110308
  Transmission Date: 20110831
  Serious: Yes (Hospitalization, Other)
  Sender: FDA-Public Use
  Company Number: JP-PFIZER INC-2010146254

PATIENT
  Age: 83 Year
  Sex: Female
  Weight: 48.6 kg

DRUGS (7)
  1. RENIVACE [Concomitant]
  2. MAGNESIUM OXIDE [Concomitant]
  3. PURSENNID [Concomitant]
  4. LYRICA [Suspect]
     Indication: POST HERPETIC NEURALGIA
     Dosage: 75 MG, 2X/DAY
     Route: 048
     Dates: start: 20100628, end: 20100715
  5. TAKEPRON [Concomitant]
  6. DIAZEPAM [Concomitant]
     Indication: INSOMNIA
     Dosage: 2 MG, 1X/DAY
     Route: 048
  7. HALCION [Concomitant]
     Indication: INSOMNIA
     Dosage: 0.125 MG, 1X/DAY
     Route: 048

REACTIONS (2)
  - DECREASED APPETITE [None]
  - ASTHENIA [None]
